FAERS Safety Report 11185151 (Version 1)
Quarter: 2015Q2

REPORT INFORMATION
  Report Type: Report from Study
  Country: US (occurrence: None)
  Receive Date: 20150601
  Receipt Date: 20150601
  Transmission Date: 20150821
  Serious: Yes (Hospitalization)
  Sender: FDA-Public Use
  Company Number: 2015-000230

PATIENT
  Age: 54 Year
  Sex: Female
  Weight: 73.5 kg

DRUGS (11)
  1. VITAMINS NOS [Concomitant]
     Active Substance: VITAMINS
  2. FOSAMAX [Suspect]
     Active Substance: ALENDRONATE SODIUM
     Dates: start: 2000, end: 2008
  3. TOLTERODINE HCL (BUPROPION HYDROCHLORIDE) [Concomitant]
  4. LEFLUNOMIDE. [Concomitant]
     Active Substance: LEFLUNOMIDE
  5. BAYER ASPIRIN (ACETYLSALICYLIC ACID) [Concomitant]
  6. ACTONEL [Suspect]
     Active Substance: RISEDRONATE SODIUM
     Route: 048
     Dates: start: 2000, end: 2008
  7. HUMIRA [Suspect]
     Active Substance: ADALIMUMAB
     Indication: RHEUMATOID ARTHRITIS
     Dates: start: 2002, end: 2008
  8. BUPROPION HCL (BUPROPION HYDROCHLORIDE) [Concomitant]
     Active Substance: BUPROPION HYDROCHLORIDE
  9. PRAVASTATIN [Concomitant]
     Active Substance: PRAVASTATIN\PRAVASTATIN SODIUM
  10. TRIAMTERENE. [Concomitant]
     Active Substance: TRIAMTERENE
  11. ESTRACE VAGINAL (ESTRADIOL) [Concomitant]

REACTIONS (3)
  - Impaired healing [None]
  - Fall [None]
  - Femur fracture [None]

NARRATIVE: CASE EVENT DATE: 2008
